FAERS Safety Report 20627496 (Version 1)
Quarter: 2022Q1

REPORT INFORMATION
  Report Type: Spontaneous
  Country: US (occurrence: None)
  Receive Date: 20220322
  Receipt Date: 20220322
  Transmission Date: 20220424
  Serious: No
  Sender: FDA-Public Use
  Company Number: None

PATIENT
  Sex: Male
  Weight: 105.75 kg

DRUGS (1)
  1. CLONAZEPAM [Suspect]
     Active Substance: CLONAZEPAM
     Indication: Anxiety
     Dates: start: 20130501

REACTIONS (22)
  - Withdrawal syndrome [None]
  - Fear [None]
  - Myalgia [None]
  - Muscle spasms [None]
  - Tinnitus [None]
  - Suicidal ideation [None]
  - Depression [None]
  - Paraesthesia [None]
  - Dizziness [None]
  - Agoraphobia [None]
  - Nausea [None]
  - Headache [None]
  - Panic attack [None]
  - Anxiety [None]
  - Condition aggravated [None]
  - Impaired work ability [None]
  - Stress [None]
  - Drug ineffective [None]
  - Feeling abnormal [None]
  - Nerve injury [None]
  - Brain injury [None]
  - Product complaint [None]
